FAERS Safety Report 5809249-4 (Version None)
Quarter: 2008Q3

REPORT INFORMATION
  Report Type: 
  Country: None (occurrence: None)
  Receive Date: 20080714
  Receipt Date: 20080627
  Transmission Date: 20090109
  Serious: No
  Sender: FDA-Public Use
  Company Number: US-BOEHRINGER INGELHEIM GMBH, GERMANY-2008-BP-10018BP

PATIENT
  Sex: Male

DRUGS (3)
  1. COMBIVENT [Suspect]
     Indication: OBSTRUCTIVE AIRWAYS DISORDER
     Route: 055
     Dates: start: 20080501, end: 20080601
  2. QVAR 40 [Concomitant]
  3. PREDNISONE TAB [Concomitant]

REACTIONS (3)
  - CHOKING [None]
  - DRUG EFFECT DECREASED [None]
  - WHEEZING [None]
